FAERS Safety Report 11349094 (Version 3)
Quarter: 2015Q3

REPORT INFORMATION
  Report Type: Spontaneous
  Country: IE (occurrence: IE)
  Receive Date: 20150807
  Receipt Date: 20150924
  Transmission Date: 20151125
  Serious: No
  Sender: FDA-Public Use
  Company Number: IE-JNJFOC-20150721929

PATIENT
  Sex: Male

DRUGS (12)
  1. CALPOL [Suspect]
     Active Substance: ACETAMINOPHEN
     Indication: OROPHARYNGEAL PAIN
     Route: 065
     Dates: start: 200805
  2. CALPOL [Suspect]
     Active Substance: ACETAMINOPHEN
     Indication: PYREXIA
     Dosage: 1 OR 2 DOSES
     Route: 065
  3. CALPOL [Suspect]
     Active Substance: ACETAMINOPHEN
     Indication: PYREXIA
     Route: 065
  4. CALPOL [Suspect]
     Active Substance: ACETAMINOPHEN
     Indication: EAR PAIN
     Route: 065
  5. CALPOL [Suspect]
     Active Substance: ACETAMINOPHEN
     Indication: OROPHARYNGEAL PAIN
     Route: 065
  6. CALPOL [Suspect]
     Active Substance: ACETAMINOPHEN
     Indication: PYREXIA
     Route: 065
  7. CALPOL [Suspect]
     Active Substance: ACETAMINOPHEN
     Indication: PYREXIA
     Route: 065
     Dates: start: 200805
  8. CALPOL [Suspect]
     Active Substance: ACETAMINOPHEN
     Indication: EAR PAIN
     Route: 065
  9. CALPOL [Suspect]
     Active Substance: ACETAMINOPHEN
     Indication: EAR PAIN
     Route: 065
     Dates: start: 200805
  10. CALPOL [Suspect]
     Active Substance: ACETAMINOPHEN
     Indication: OROPHARYNGEAL PAIN
     Route: 065
  11. CALPOL [Suspect]
     Active Substance: ACETAMINOPHEN
     Indication: OROPHARYNGEAL PAIN
     Dosage: 1 OR 2 DOSES
     Route: 065
  12. CALPOL [Suspect]
     Active Substance: ACETAMINOPHEN
     Indication: EAR PAIN
     Dosage: 1 OR 2 DOSES
     Route: 065

REACTIONS (1)
  - Vomiting [Unknown]

NARRATIVE: CASE EVENT DATE: 200805
